FAERS Safety Report 9290230 (Version 1)
Quarter: 2013Q2

REPORT INFORMATION
  Report Type: Spontaneous
  Country: AU (occurrence: AU)
  Receive Date: 20130515
  Receipt Date: 20130515
  Transmission Date: 20140414
  Serious: Yes (Other)
  Sender: FDA-Public Use
  Company Number: AU-JNJFOC-20130505148

PATIENT
  Age: 27 Year
  Sex: Female

DRUGS (3)
  1. INFLIXIMAB, RECOMBINANT [Suspect]
     Indication: CROHN^S DISEASE
     Route: 042
  2. THYROXINE [Concomitant]
     Indication: HYPOTHYROIDISM
     Route: 065
  3. ESOMEPRAZOLE [Concomitant]
     Route: 065

REACTIONS (1)
  - Peroneal nerve palsy [Recovered/Resolved]
